FAERS Safety Report 24846337 (Version 1)
Quarter: 2025Q1

REPORT INFORMATION
  Report Type: Spontaneous
  Country: US (occurrence: US)
  Receive Date: 20250115
  Receipt Date: 20250115
  Transmission Date: 20250408
  Serious: Yes (Other)
  Sender: ALNYLAM PHARMACEUTICALS
  Company Number: US-ALNYLAM PHARMACEUTICALS, INC.-ALN-2025-000221

PATIENT

DRUGS (3)
  1. GIVLAARI [Suspect]
     Active Substance: GIVOSIRAN SODIUM
     Indication: Product used for unknown indication
     Route: 065
  2. HEME [Suspect]
     Active Substance: HEME
     Indication: Product used for unknown indication
     Route: 065
  3. PANHEMATIN [Concomitant]
     Active Substance: HEMIN
     Indication: Product used for unknown indication
     Route: 065
     Dates: start: 1996

REACTIONS (3)
  - Paralysis [Not Recovered/Not Resolved]
  - Pain [Not Recovered/Not Resolved]
  - Ill-defined disorder [Not Recovered/Not Resolved]
